FAERS Safety Report 24414410 (Version 1)
Quarter: 2024Q4

REPORT INFORMATION
  Report Type: Spontaneous
  Country: US (occurrence: US)
  Receive Date: 20241009
  Receipt Date: 20241009
  Transmission Date: 20250115
  Serious: Yes (Other)
  Sender: NOVO NORDISK
  Company Number: US-NOVOPROD-1293083

PATIENT
  Sex: Female

DRUGS (2)
  1. OZEMPIC [Suspect]
     Active Substance: SEMAGLUTIDE
     Indication: Blood glucose increased
     Dosage: 1 MG
     Route: 058
  2. METHENAMINE [Concomitant]
     Active Substance: METHENAMINE
     Indication: Bladder disorder
     Dosage: UNK

REACTIONS (2)
  - Hip arthroplasty [Not Recovered/Not Resolved]
  - Diarrhoea [Recovered/Resolved]
